FAERS Safety Report 6577652-3 (Version None)
Quarter: 2010Q1

REPORT INFORMATION
  Report Type: 
  Country: None (occurrence: None)
  Receive Date: 20100211
  Receipt Date: 20100202
  Transmission Date: 20100710
  Serious: Yes (Hospitalization)
  Sender: FDA-Public Use
  Company Number: PHHY2009GB54041

PATIENT
  Sex: Female

DRUGS (2)
  1. CLOZARIL [Suspect]
     Indication: SCHIZOPHRENIA
     Dosage: UNK
     Dates: start: 19990910
  2. CLOZARIL [Suspect]
     Dosage: UNK
     Dates: start: 20091211

REACTIONS (2)
  - FEELING ABNORMAL [None]
  - TREATMENT NONCOMPLIANCE [None]
